FAERS Safety Report 6055161-8 (Version None)
Quarter: 2009Q1

REPORT INFORMATION
  Report Type: 
  Country: None (occurrence: None)
  Receive Date: 20090122
  Receipt Date: 20090108
  Transmission Date: 20090719
  Serious: Yes (Death)
  Sender: FDA-Public Use
  Company Number: 039925

PATIENT
  Age: 57 Year
  Sex: Male

DRUGS (6)
  1. VERAPAMIL HCL [Suspect]
  2. PROPRANOLOL [Suspect]
  3. LITHIUM CARBONATE [Suspect]
  4. GLIPIZIDE [Suspect]
  5. QUETIAPINE FUMARATE [Suspect]
  6. PAROXETINE HCL [Suspect]

REACTIONS (1)
  - DRUG TOXICITY [None]
